FAERS Safety Report 24056675 (Version 1)
Quarter: 2024Q3

REPORT INFORMATION
  Report Type: Spontaneous
  Country: US (occurrence: US)
  Receive Date: 20240705
  Receipt Date: 20240705
  Transmission Date: 20241016
  Serious: Yes (unspecified)
  Sender: ANAZAOHEALTH CORPORATION
  Company Number: US-AnazaoHealth Corporation-2158882

PATIENT
  Age: 54 Year
  Sex: Female

DRUGS (3)
  1. TESTOSTERONE [Suspect]
     Active Substance: TESTOSTERONE
     Route: 058
     Dates: start: 20240604
  2. TESTOSTERONE [Concomitant]
     Active Substance: TESTOSTERONE
     Route: 058
     Dates: start: 20240604
  3. ESTRADIOL [Concomitant]
     Active Substance: ESTRADIOL
     Route: 058
     Dates: start: 20240604

REACTIONS (1)
  - Abscess [Recovering/Resolving]

NARRATIVE: CASE EVENT DATE: 20240610
